FAERS Safety Report 18733544 (Version 2)
Quarter: 2021Q1

REPORT INFORMATION
  Report Type: Spontaneous
  Country: AR (occurrence: AR)
  Receive Date: 20210113
  Receipt Date: 20210211
  Transmission Date: 20210419
  Serious: Yes (Other)
  Sender: FDA-Public Use
  Company Number: AR-ROCHE-2746048

PATIENT
  Age: 41 Year
  Sex: Female

DRUGS (15)
  1. CYCLOPHOSPHAMIDE. [Concomitant]
     Active Substance: CYCLOPHOSPHAMIDE
     Indication: B-CELL LYMPHOMA STAGE IV
     Dosage: 6 CYCLES
     Dates: start: 20180701
  2. RITUXIMAB. [Suspect]
     Active Substance: RITUXIMAB
     Dosage: DOSE WAS NOT REPORTED
     Route: 065
     Dates: start: 20180701
  3. RITUXIMAB. [Suspect]
     Active Substance: RITUXIMAB
     Dosage: DOSE WAS NOT REPORTED
     Route: 065
     Dates: start: 20181201
  4. IFOSFAMIDE. [Concomitant]
     Active Substance: IFOSFAMIDE
     Indication: B-CELL LYMPHOMA STAGE IV
     Dosage: 2 CYCLES
     Dates: start: 201911
  5. ETOPOSIDE. [Concomitant]
     Active Substance: ETOPOSIDE
     Indication: B-CELL LYMPHOMA STAGE IV
     Dosage: 2 CYCLES
     Dates: start: 201911
  6. BENDAMUSTINE [Concomitant]
     Active Substance: BENDAMUSTINE
     Indication: B-CELL LYMPHOMA STAGE IV
     Dosage: 4 CYCLES
     Dates: start: 202002
  7. RITUXIMAB. [Suspect]
     Active Substance: RITUXIMAB
     Dosage: DOSE WAS NOT REPORTED
     Route: 065
     Dates: start: 20191101
  8. OBINUTUZUMAB. [Suspect]
     Active Substance: OBINUTUZUMAB
     Indication: B-CELL LYMPHOMA STAGE IV
     Dosage: 4 CYCLES
     Route: 042
     Dates: start: 202002
  9. PREDNISONE. [Concomitant]
     Active Substance: PREDNISONE
     Indication: B-CELL LYMPHOMA STAGE IV
     Dosage: 6 CYCLES
     Dates: start: 201807
  10. DOXORUBICIN [Concomitant]
     Active Substance: DOXORUBICIN
     Indication: B-CELL LYMPHOMA STAGE IV
     Dosage: 6 CYCLES
     Dates: start: 20180701
  11. METHYLPREDNISOLONE. [Concomitant]
     Active Substance: METHYLPREDNISOLONE
     Indication: B-CELL LYMPHOMA STAGE IV
     Dates: start: 202011
  12. LENALIDOMIDE [Concomitant]
     Active Substance: LENALIDOMIDE
     Indication: B-CELL LYMPHOMA STAGE IV
     Dates: start: 202011
  13. RITUXIMAB. [Suspect]
     Active Substance: RITUXIMAB
     Indication: B-CELL LYMPHOMA STAGE IV
     Dosage: 375 MG/ M WEEKLY X 4, PLAN TO COMPLETE 4?6 MONTHLY APPLICATIONS
     Route: 065
     Dates: start: 20201101
  14. VINCRISTINE [Concomitant]
     Active Substance: VINCRISTINE
     Indication: B-CELL LYMPHOMA STAGE IV
     Dosage: 6 CYCLES
     Dates: start: 201807
  15. CARBOPLATIN. [Concomitant]
     Active Substance: CARBOPLATIN
     Indication: B-CELL LYMPHOMA STAGE IV
     Dosage: 2 CYCLES
     Dates: start: 201911

REACTIONS (5)
  - B-cell lymphoma recurrent [Unknown]
  - Aspartate aminotransferase increased [Unknown]
  - B-cell lymphoma stage IV [Unknown]
  - Blood lactate dehydrogenase increased [Unknown]
  - Alanine aminotransferase increased [Unknown]
